FAERS Safety Report 14281474 (Version 4)
Quarter: 2018Q1

REPORT INFORMATION
  Report Type: Report from Study
  Country: None (occurrence: ES)
  Receive Date: 20171213
  Receipt Date: 20180202
  Transmission Date: 20180508
  Serious: Yes (Hospitalization, Other)
  Sender: FDA-Public Use
  Company Number: ES-ABBVIE-17K-144-2192294-00

PATIENT
  Age: 67 Year
  Sex: Male

DRUGS (2)
  1. KEPPRA [Concomitant]
     Active Substance: LEVETIRACETAM
     Indication: PRODUCT USED FOR UNKNOWN INDICATION
  2. DUODOPA [Suspect]
     Active Substance: CARBIDOPA\LEVODOPA
     Indication: PARKINSON^S DISEASE
     Route: 050
     Dates: start: 20060518

REACTIONS (15)
  - Apraxia [Recovered/Resolved]
  - Somnolence [Recovered/Resolved]
  - Embedded device [Unknown]
  - Subdural haematoma [Recovered/Resolved]
  - Aggression [Recovered/Resolved]
  - Stoma site erythema [Recovering/Resolving]
  - Hypokinesia [Unknown]
  - Aphasia [Recovered/Resolved]
  - Intracranial mass [Recovered/Resolved]
  - Delirium [Recovered/Resolved]
  - Stoma site infection [Recovering/Resolving]
  - Stoma site discharge [Not Recovered/Not Resolved]
  - Squamous cell carcinoma of the tongue [Recovered/Resolved]
  - Simple partial seizures [Recovered/Resolved]
  - Head injury [Recovered/Resolved]

NARRATIVE: CASE EVENT DATE: 201608
